FAERS Safety Report 16466424 (Version 2)
Quarter: 2019Q2

REPORT INFORMATION
  Report Type: Spontaneous
  Country: PT (occurrence: PT)
  Receive Date: 20190622
  Receipt Date: 20190627
  Transmission Date: 20190711
  Serious: Yes (Other)
  Sender: FDA-Public Use
  Company Number: PT-ACCORD-134144

PATIENT
  Age: 65 Year
  Sex: Male

DRUGS (8)
  1. EPTIFIBATIDE ACCORD [Suspect]
     Active Substance: EPTIFIBATIDE
     Indication: CORONARY ANGIOPLASTY
     Dosage: 14 ML / H (ACCORDING TO WEIGHT), ALSO RECEIVED UNK DOSE FROM 22-MAY-2019 TO 23-MAY-2019
     Route: 042
     Dates: start: 20190511, end: 20190511
  2. PANTOPRAZOLE [Concomitant]
     Active Substance: PANTOPRAZOLE
  3. ASP [Concomitant]
     Active Substance: ASPIRIN
  4. BISOPROLOL [Concomitant]
     Active Substance: BISOPROLOL
  5. TICAGRELOR. [Concomitant]
     Active Substance: TICAGRELOR
  6. RAMIPRIL. [Concomitant]
     Active Substance: RAMIPRIL
  7. CARVEDILOL/CARVEDILOL HYDROCHLODRIDE [Concomitant]
  8. ATORVASTATIN [Concomitant]
     Active Substance: ATORVASTATIN

REACTIONS (2)
  - Injection site haematoma [Recovered/Resolved]
  - Administration site haemorrhage [Recovered/Resolved]

NARRATIVE: CASE EVENT DATE: 20190511
